APPROVED DRUG PRODUCT: TERIFLUNOMIDE
Active Ingredient: TERIFLUNOMIDE
Strength: 14MG
Dosage Form/Route: TABLET;ORAL
Application: A209663 | Product #002 | TE Code: AB
Applicant: GLENMARK SPECIALTY SA
Approved: Nov 15, 2018 | RLD: No | RS: No | Type: RX